FAERS Safety Report 7757637-1 (Version None)
Quarter: 2011Q3

REPORT INFORMATION
  Report Type: 
  Country: None (occurrence: None)
  Receive Date: 20110916
  Receipt Date: 20110905
  Transmission Date: 20111222
  Serious: Yes (Hospitalization)
  Sender: FDA-Public Use
  Company Number: PHHO2011FR15139

PATIENT
  Sex: Female
  Weight: 58 kg

DRUGS (3)
  1. IMATINIB MESYLATE [Suspect]
     Indication: ACUTE LYMPHOCYTIC LEUKAEMIA
  2. OMEPRAZOLE [Concomitant]
     Indication: GASTRITIS PROPHYLAXIS
     Dosage: 20 MG, UNK
     Route: 048
     Dates: start: 20090424
  3. VORICONAZOLE [Concomitant]
     Indication: ASPERGILLOSIS
     Dosage: 400 MG, UNK
     Route: 048
     Dates: start: 20090311

REACTIONS (2)
  - CYTOMEGALOVIRUS COLITIS [None]
  - GASTROENTERITIS VIRAL [None]
